FAERS Safety Report 8427144-1 (Version None)
Quarter: 2012Q2

REPORT INFORMATION
  Report Type: 
  Country: None (occurrence: None)
  Receive Date: 20120611
  Receipt Date: 20120607
  Transmission Date: 20120825
  Serious: Yes (Other)
  Sender: FDA-Public Use
  Company Number: CN-ABBOTT-12P-035-0943974-00

PATIENT
  Age: 63 Year
  Sex: Male

DRUGS (3)
  1. VALPROIC ACID [Suspect]
     Indication: EPILEPSY
     Dosage: 1000 MG DAILY
     Route: 048
     Dates: start: 20120401
  2. CARBAMAZEPINE [Suspect]
     Indication: EPILEPSY
     Dosage: 2 UNITS DAILY
     Route: 048
  3. PLANT ALKALOIDS AND OTHER NATURAL PRODUCTS [Concomitant]
     Indication: PRODUCT USED FOR UNKNOWN INDICATION

REACTIONS (5)
  - CONVULSION [None]
  - EPILEPSY [None]
  - TONGUE BITING [None]
  - LOSS OF CONSCIOUSNESS [None]
  - PALPITATIONS [None]
